FAERS Safety Report 5864816-7 (Version None)
Quarter: 2008Q3

REPORT INFORMATION
  Report Type: 
  Country: None (occurrence: None)
  Receive Date: 20080829
  Receipt Date: 20080721
  Transmission Date: 20090109
  Serious: No
  Sender: FDA-Public Use
  Company Number: US-ABBOTT-08P-163-0464296-00

PATIENT
  Sex: Female

DRUGS (6)
  1. SIMCOR [Suspect]
     Indication: BLOOD CHOLESTEROL INCREASED
     Route: 048
     Dates: start: 20080527, end: 20080701
  2. OLMESARTAN MEDOXOMIL [Concomitant]
     Indication: HYPERTENSION
     Route: 048
  3. SUPER B COMPLEX [Concomitant]
     Indication: BLOOD CHOLESTEROL INCREASED
     Route: 048
  4. OMEGA [Concomitant]
     Indication: BLOOD CHOLESTEROL INCREASED
     Route: 048
  5. CARISOPRODOL [Concomitant]
     Indication: PAIN
     Route: 048
  6. CARISOPRODOL [Concomitant]
     Indication: MUSCLE STRAIN

REACTIONS (1)
  - SOMNOLENCE [None]
